FAERS Safety Report 23931664 (Version 2)
Quarter: 2024Q2

REPORT INFORMATION
  Report Type: Spontaneous
  Country: DE (occurrence: DE)
  Receive Date: 20240603
  Receipt Date: 20240607
  Transmission Date: 20240716
  Serious: Yes (Other)
  Sender: FDA-Public Use
  Company Number: DE-BAUSCHBL-2024BNL027570

PATIENT
  Age: 13 Year
  Sex: Female

DRUGS (2)
  1. CYCLOPENTOLATE [Suspect]
     Active Substance: CYCLOPENTOLATE
     Indication: Mydriasis
     Dosage: WAS GIVEN 2 DROPS
     Route: 047
     Dates: start: 20240513
  2. ATROPINE SULFATE [Concomitant]
     Active Substance: ATROPINE SULFATE
     Indication: Product used for unknown indication

REACTIONS (5)
  - Visual impairment [Not Recovered/Not Resolved]
  - Akathisia [Unknown]
  - Mydriasis [Not Recovered/Not Resolved]
  - Sleep disorder [Unknown]
  - Psychomotor hyperactivity [Unknown]
